FAERS Safety Report 9330517 (Version 1)
Quarter: 2013Q2

REPORT INFORMATION
  Report Type: Spontaneous
  Country: US (occurrence: None)
  Receive Date: 20130604
  Receipt Date: 20130604
  Transmission Date: 20140414
  Serious: Yes (Hospitalization)
  Sender: FDA-Public Use
  Company Number: None

PATIENT
  Age: 65 Year
  Sex: Male
  Weight: 64.86 kg

DRUGS (5)
  1. SEPHB4-HSA [Suspect]
     Indication: LUNG ADENOCARCINOMA
     Dosage: 5 MG/KG D1, 8, 15, 22 IV DRIP
     Dates: start: 20130117, end: 20130531
  2. METOPROLOL [Concomitant]
  3. SIMVASTATIN [Concomitant]
  4. METFORMIN [Concomitant]
  5. MULTIVITAMIN [Concomitant]

REACTIONS (9)
  - Dizziness [None]
  - Fall [None]
  - Disorientation [None]
  - Bradycardia [None]
  - Syncope [None]
  - Blood pressure increased [None]
  - Treatment noncompliance [None]
  - Cardio-respiratory arrest [None]
  - Blood glucose increased [None]
